FAERS Safety Report 19157853 (Version 1)
Quarter: 2021Q2

REPORT INFORMATION
  Report Type: Spontaneous
  Country: DE (occurrence: DE)
  Receive Date: 20210420
  Receipt Date: 20210420
  Transmission Date: 20210717
  Serious: Yes (Life-Threatening, Hospitalization, Other)
  Sender: FDA-Public Use
  Company Number: DE-ACCORD-222370

PATIENT
  Age: 62 Year
  Sex: Male

DRUGS (1)
  1. AMITRIPTYLINE [Suspect]
     Active Substance: AMITRIPTYLINE
     Indication: PRODUCT USED FOR UNKNOWN INDICATION
     Dosage: 40 X 100 MG

REACTIONS (6)
  - Toxicity to various agents [Unknown]
  - Drug level increased [Recovering/Resolving]
  - Intentional overdose [Unknown]
  - Neurological decompensation [Recovering/Resolving]
  - Delirium [Recovering/Resolving]
  - Altered state of consciousness [Recovering/Resolving]
